FAERS Safety Report 5093113-5 (Version None)
Quarter: 2006Q3

REPORT INFORMATION
  Report Type: 
  Country: None (occurrence: None)
  Receive Date: 20060828
  Receipt Date: 20060811
  Transmission Date: 20061208
  Serious: Yes (Disabling, Other)
  Sender: FDA-Public Use
  Company Number: DSA_28599_2006

PATIENT
  Age: 54 Year
  Sex: Female

DRUGS (2)
  1. CARDIZEM LA [Suspect]
     Indication: HYPERTENSION
     Dosage: 240 MG Q DAY
     Dates: start: 20051001
  2. TRIAMTERENE AND HYDROCHLOROTHIAZIDE [Concomitant]

REACTIONS (6)
  - ARTHRALGIA [None]
  - GAIT DISTURBANCE [None]
  - GOUT [None]
  - IMPAIRED WORK ABILITY [None]
  - PAIN IN EXTREMITY [None]
  - POLLAKIURIA [None]
